FAERS Safety Report 9313412 (Version 1)
Quarter: 2013Q2

REPORT INFORMATION
  Report Type: Spontaneous
  Country: DE (occurrence: DE)
  Receive Date: 20130528
  Receipt Date: 20130528
  Transmission Date: 20140414
  Serious: Yes (Congenital Anomaly, Other)
  Sender: FDA-Public Use
  Company Number: GXKR2013DE001922

PATIENT
  Sex: Male
  Weight: 4.88 kg

DRUGS (7)
  1. LAMOTRIGINE [Suspect]
     Dosage: MATERNAL DOSE (THROUGHOUT PREGNANCY): 3X100MG/DAY
     Route: 064
  2. KEPPRA [Suspect]
     Dosage: MATERNAL DOSE (THROUGHOUT PREGNANCY): 2X1000MG/DAY
     Route: 064
  3. SEROQUEL [Suspect]
     Dosage: MATERNAL DOSE (THROUGHOUT PREGNANCY): 2X25MG/DAY
     Route: 064
  4. RIVOTRIL [Suspect]
     Dosage: MATERNAL DOSE (UNTIL GW 31+5): 0.5MG/DAY
     Route: 064
  5. EUTHYROX [Concomitant]
     Dosage: MATERNAL DOSE (THROUGHOUT PREGNANCY): 150UG/DAY
     Route: 064
  6. STANGYL [Concomitant]
     Dosage: MATERNAL DOSE (UNTIL GW18+5): 100MG/DAY
     Route: 064
  7. HEROIN [Concomitant]
     Dosage: MATERNAL DOSE (1ST+2ND TRIMESTER): UNKNOWN
     Route: 064

REACTIONS (4)
  - Dysmorphism [Unknown]
  - Neonatal respiratory distress syndrome [Recovered/Resolved]
  - Convulsion [Recovered/Resolved]
  - Withdrawal syndrome [Recovered/Resolved]
